FAERS Safety Report 10079091 (Version 2)
Quarter: 2014Q2

REPORT INFORMATION
  Report Type: Report from Study
  Country: US (occurrence: US)
  Receive Date: 20140415
  Receipt Date: 20140415
  Transmission Date: 20141212
  Serious: No
  Sender: FDA-Public Use
  Company Number: PHEH2014US004146

PATIENT
  Age: 43 Year
  Sex: Female

DRUGS (11)
  1. TASIGNA [Suspect]
     Indication: CHRONIC MYELOID LEUKAEMIA
     Dosage: 300 MG, BID
     Route: 048
     Dates: start: 20140205
  2. CIPRO ^MILES^ [Concomitant]
     Dosage: UNK UKN, UNK
  3. LISINOPRIL [Concomitant]
     Dosage: UNK UKN, UNK
  4. SEROQUEL [Concomitant]
     Dosage: UNK UKN, UNK
  5. DEPAKOTE [Concomitant]
     Dosage: 500 MG, DAILY
  6. FERROUS SULFATE [Concomitant]
     Indication: IRON DEFICIENCY
     Dosage: 325 UKN, BID
     Dates: start: 201310
  7. FLONASE [Concomitant]
     Indication: SINUSITIS
     Dosage: DAILY
     Dates: start: 201309
  8. INSULIN [Concomitant]
     Dosage: VARIABLE
     Dates: start: 201401
  9. XANAX [Concomitant]
     Indication: ANXIETY
     Dosage: 01 MG, TID
     Dates: start: 201303
  10. ZOFRAN [Concomitant]
     Indication: NAUSEA
     Dosage: 8 MG, PRN
     Dates: start: 201303
  11. REGLAN                                  /USA/ [Concomitant]
     Dosage: 10 MG, QD

REACTIONS (2)
  - Dermatitis acneiform [Not Recovered/Not Resolved]
  - Rash [Not Recovered/Not Resolved]
